FAERS Safety Report 23696444 (Version 2)
Quarter: 2024Q2

REPORT INFORMATION
  Report Type: Spontaneous
  Country: DE (occurrence: DE)
  Receive Date: 20240402
  Receipt Date: 20240411
  Transmission Date: 20240716
  Serious: Yes (Other)
  Sender: FDA-Public Use
  Company Number: DE-ALKEM LABORATORIES LIMITED-DE-ALKEM-2024-05559

PATIENT
  Age: 60 Year
  Sex: Male

DRUGS (19)
  1. GABAPENTIN [Suspect]
     Active Substance: GABAPENTIN
     Indication: Post-anoxic myoclonus
     Dosage: UNK
     Route: 065
  2. TOPIRAMATE [Suspect]
     Active Substance: TOPIRAMATE
     Indication: Post-anoxic myoclonus
     Dosage: UNK
     Route: 065
  3. BRIVARACETAM [Suspect]
     Active Substance: BRIVARACETAM
     Indication: Post-anoxic myoclonus
     Dosage: 150 MILLIGRAM (MAXIMUM DAILY DOSE)
     Route: 065
  4. PERAMPANEL [Suspect]
     Active Substance: PERAMPANEL
     Indication: Post-anoxic myoclonus
     Dosage: 8 MILLIGRAM (MAXIMUM DAILY DOSE)
     Route: 065
  5. PERAMPANEL [Suspect]
     Active Substance: PERAMPANEL
     Dosage: 2 MG/DAY
     Route: 065
  6. PERAMPANEL [Suspect]
     Active Substance: PERAMPANEL
     Dosage: 4 MG/DAY
     Route: 065
  7. PERAMPANEL [Suspect]
     Active Substance: PERAMPANEL
     Dosage: UNK (DOSE DECREASED)
     Route: 065
  8. LAMOTRIGINE [Suspect]
     Active Substance: LAMOTRIGINE
     Indication: Post-anoxic myoclonus
     Dosage: UNK
     Route: 065
  9. DRONABINOL [Suspect]
     Active Substance: DRONABINOL
     Indication: Post-anoxic myoclonus
     Dosage: UNK (30 DROPS/D, EQUIVALENT TO 26.3 MG/D))
     Route: 065
  10. DRONABINOL [Suspect]
     Active Substance: DRONABINOL
     Dosage: UNK (20 DROPS/D, EQUIVALENT TO 17.5 MG/D))
     Route: 065
  11. ESLICARBAZEPINE [Suspect]
     Active Substance: ESLICARBAZEPINE
     Indication: Post-anoxic myoclonus
     Dosage: UNK
     Route: 065
  12. LEVETIRACETAM [Suspect]
     Active Substance: LEVETIRACETAM
     Indication: Post-anoxic myoclonus
     Dosage: 1500 MILLIGRAM (MAXIMUM DAILY DOSE)
     Route: 065
  13. LEVETIRACETAM [Suspect]
     Active Substance: LEVETIRACETAM
     Dosage: 500 MG/DAY
     Route: 065
  14. PREGABALIN [Suspect]
     Active Substance: PREGABALIN
     Indication: Post-anoxic myoclonus
     Dosage: UNK
     Route: 065
  15. CLONAZEPAM [Suspect]
     Active Substance: CLONAZEPAM
     Indication: Post-anoxic myoclonus
     Dosage: 1.5 MG/D
     Route: 065
  16. CLONAZEPAM [Suspect]
     Active Substance: CLONAZEPAM
     Dosage: 2 MG/D
     Route: 065
  17. VALPROATE [Suspect]
     Active Substance: VALPROIC ACID
     Indication: Post-anoxic myoclonus
     Dosage: UNK
     Route: 065
  18. ZONISAMIDE [Suspect]
     Active Substance: ZONISAMIDE
     Indication: Post-anoxic myoclonus
     Dosage: UNK
     Route: 065
  19. PIRACETAM [Concomitant]
     Active Substance: PIRACETAM
     Indication: Post-anoxic myoclonus
     Dosage: 2400 MILLIGRAM, QD (MAXIMUM DAILY DOSE)
     Route: 065

REACTIONS (11)
  - Speech disorder [Unknown]
  - Salivary hypersecretion [Unknown]
  - Nausea [Unknown]
  - Vomiting [Unknown]
  - Aggression [Unknown]
  - Myoclonus [Unknown]
  - Rash [Unknown]
  - Fatigue [Unknown]
  - Parkinsonism [Unknown]
  - Dystonia [Unknown]
  - Therapy partial responder [Unknown]
